FAERS Safety Report 4700002-1 (Version None)
Quarter: 2005Q2

REPORT INFORMATION
  Report Type: 
  Country: None (occurrence: None)
  Receive Date: 20050623
  Receipt Date: 20050609
  Transmission Date: 20051028
  Serious: Yes (Hospitalization)
  Sender: FDA-Public Use
  Company Number: 200313236BCC

PATIENT
  Age: 79 Year
  Sex: Male
  Weight: 79.8331 kg

DRUGS (10)
  1. ALEVE [Suspect]
     Indication: DEMENTIA ALZHEIMER'S TYPE
     Dosage: BID, ORAL
     Route: 048
     Dates: end: 20020708
  2. PLAVIX [Concomitant]
     Indication: PROPHYLAXIS
  3. GLUCOSAMINE [Concomitant]
  4. MSM [Concomitant]
  5. ASPIRIN [Concomitant]
  6. LIPITOR [Concomitant]
  7. MULTIPLE VITAMIN [Concomitant]
  8. VITAMIN E [Concomitant]
  9. SELENIUM SULFIDE [Concomitant]
  10. TAMSULOSIN [Concomitant]

REACTIONS (5)
  - CHEST PAIN [None]
  - CORONARY ARTERY STENOSIS [None]
  - DYSPNOEA [None]
  - ELECTROCARDIOGRAM ST SEGMENT ELEVATION [None]
  - MYOCARDIAL ISCHAEMIA [None]
